FAERS Safety Report 18246820 (Version 1)
Quarter: 2020Q3

REPORT INFORMATION
  Report Type: Spontaneous
  Country: FR (occurrence: FR)
  Receive Date: 20200909
  Receipt Date: 20200909
  Transmission Date: 20201103
  Serious: Yes (Hospitalization)
  Sender: FDA-Public Use
  Company Number: FR-CADILA HEALTHCARE LIMITED-FR-ZYDUS-024291

PATIENT

DRUGS (8)
  1. SPASFON [Concomitant]
     Dosage: ()
  2. REPAGLINIDE. [Concomitant]
     Active Substance: REPAGLINIDE
  3. SILODOSINE [Concomitant]
     Active Substance: SILODOSIN
     Dosage: ()
  4. PREVISCAN (FRANCE) [Suspect]
     Active Substance: FLUINDIONE
     Indication: PULMONARY EMBOLISM
     Dosage: 1.5 DOSAGE FORM,(INTERVAL :1 DAYS)
     Route: 048
  5. LOSARTAN. [Suspect]
     Active Substance: LOSARTAN
     Indication: HYPERTENSION
     Dosage: 50 MILLIGRAM,(INTERVAL :1 DAYS)
     Route: 048
  6. ZOLPIDEM [Concomitant]
     Active Substance: ZOLPIDEM TARTRATE
     Dosage: ()
  7. MACROGOL [Concomitant]
     Active Substance: POLYETHYLENE GLYCOLS
  8. HAVLANE [Concomitant]
     Active Substance: LOPRAZOLAM
     Dosage: ()

REACTIONS (3)
  - Haemorrhage [Recovered/Resolved]
  - Anaemia [Not Recovered/Not Resolved]
  - Acute kidney injury [Recovering/Resolving]

NARRATIVE: CASE EVENT DATE: 20180503
